FAERS Safety Report 5015721-X (Version None)
Quarter: 2006Q2

REPORT INFORMATION
  Report Type: 
  Country: None (occurrence: None)
  Receive Date: 20060419
  Receipt Date: 20051103
  Transmission Date: 20061013
  Serious: No
  Sender: FDA-Public Use
  Company Number: 2005-04374

PATIENT
  Age: 41 Year
  Sex: Female

DRUGS (1)
  1. FERRLECIT [Suspect]
     Dosage: 250 MG OVER 2 HOURS, INTRAVENOUS
     Route: 042

REACTIONS (7)
  - ARTHRALGIA [None]
  - CHEST DISCOMFORT [None]
  - FEELING HOT [None]
  - HEADACHE [None]
  - INFUSION RELATED REACTION [None]
  - MUSCLE SPASMS [None]
  - RASH [None]
